FAERS Safety Report 6182649-1 (Version None)
Quarter: 2009Q2

REPORT INFORMATION
  Report Type: 
  Country: None (occurrence: None)
  Receive Date: 20090507
  Receipt Date: 20090428
  Transmission Date: 20091009
  Serious: Yes (Hospitalization)
  Sender: FDA-Public Use
  Company Number: A0718751A

PATIENT
  Age: 63 Year
  Sex: Female
  Weight: 119.1 kg

DRUGS (7)
  1. AVANDIA [Suspect]
     Dosage: 4MG PER DAY
     Route: 048
     Dates: start: 20030101, end: 20071218
  2. NORVASC [Concomitant]
  3. PLAVIX [Concomitant]
  4. PROTONIX [Concomitant]
  5. ACIPHEX [Concomitant]
  6. LEXAPRO [Concomitant]
  7. AVALIDE [Concomitant]

REACTIONS (1)
  - MYOCARDIAL INFARCTION [None]
